FAERS Safety Report 16688229 (Version 5)
Quarter: 2019Q4

REPORT INFORMATION
  Report Type: Report from Study
  Country: US (occurrence: US)
  Receive Date: 20190809
  Receipt Date: 20191213
  Transmission Date: 20200122
  Serious: Yes (Hospitalization, Other)
  Sender: FDA-Public Use
  Company Number: US-ACTELION-A-NJ2019-194077

PATIENT
  Age: 59 Year
  Sex: Female

DRUGS (18)
  1. FLONASE [Concomitant]
     Active Substance: FLUTICASONE PROPIONATE
  2. CULTURELLE [Concomitant]
     Active Substance: LACTOBACILLUS RHAMNOSUS
  3. TORSEMIDE. [Concomitant]
     Active Substance: TORSEMIDE
  4. ZOFRAN [Concomitant]
     Active Substance: ONDANSETRON HYDROCHLORIDE
  5. OMEPRAZOLE. [Concomitant]
     Active Substance: OMEPRAZOLE
  6. SILDENAFIL. [Concomitant]
     Active Substance: SILDENAFIL
     Indication: PULMONARY HYPERTENSION
     Dosage: UNK
  7. LASIX [Concomitant]
     Active Substance: FUROSEMIDE
     Route: 042
  8. POTASSIUM CHLORIDE. [Concomitant]
     Active Substance: POTASSIUM CHLORIDE
  9. CAPTOPRIL. [Concomitant]
     Active Substance: CAPTOPRIL
  10. FUROSEMIDE. [Concomitant]
     Active Substance: FUROSEMIDE
  11. PREDNISONE. [Concomitant]
     Active Substance: PREDNISONE
     Indication: SCLERODERMA
     Dosage: UNK
  12. LOMOTIL [Concomitant]
     Active Substance: ATROPINE SULFATE\DIPHENOXYLATE HYDROCHLORIDE
  13. TYLENOL [Concomitant]
     Active Substance: ACETAMINOPHEN
  14. CELLCEPT [Concomitant]
     Active Substance: MYCOPHENOLATE MOFETIL\MYCOPHENOLATE MOFETIL HYDROCHLORIDE
     Indication: SCLERODERMA
     Dosage: UNK
  15. OPSUMIT [Suspect]
     Active Substance: MACITENTAN
     Indication: PULMONARY HYPERTENSION
     Dosage: 10 MG, QD
     Route: 048
     Dates: start: 20180501
  16. MAGNESIUM OXIDE. [Concomitant]
     Active Substance: MAGNESIUM OXIDE
  17. ATORVASTATIN [Concomitant]
     Active Substance: ATORVASTATIN
  18. VITAMIN B [Concomitant]
     Active Substance: VITAMIN B

REACTIONS (28)
  - Cardiac failure congestive [Recovering/Resolving]
  - Red blood cell count decreased [Unknown]
  - Transfusion [Unknown]
  - Hypoxia [Recovered/Resolved]
  - Haemodialysis [Unknown]
  - Device malfunction [Unknown]
  - Haematocrit decreased [Unknown]
  - Angioplasty [Unknown]
  - Cellulitis [Unknown]
  - Dyspnoea [Recovered/Resolved]
  - Pneumonia [Recovering/Resolving]
  - Haemoglobin decreased [Unknown]
  - Haemodialysis complication [Unknown]
  - Nausea [Unknown]
  - Dyspnoea exertional [Unknown]
  - Biopsy kidney [Unknown]
  - Pulmonary congestion [Unknown]
  - Superior vena cava occlusion [Unknown]
  - Vascular access malfunction [Unknown]
  - Anaemia [Unknown]
  - Catheter management [Unknown]
  - Diarrhoea [Unknown]
  - Respiratory failure [Recovered/Resolved]
  - Pleural effusion [Recovering/Resolving]
  - Catheter site haemorrhage [Unknown]
  - Acute kidney injury [Unknown]
  - Pulmonary oedema [Recovering/Resolving]
  - Fatigue [Unknown]

NARRATIVE: CASE EVENT DATE: 20190725
